FAERS Safety Report 11520673 (Version 1)
Quarter: 2015Q3

REPORT INFORMATION
  Report Type: Spontaneous
  Country: US (occurrence: None)
  Receive Date: 20150917
  Receipt Date: 20150917
  Transmission Date: 20151125
  Serious: Yes (Life-Threatening, Disabling, Other)
  Sender: FDA-Public Use
  Company Number: None

PATIENT
  Age: 89 Year
  Sex: Female
  Weight: 63.5 kg

DRUGS (7)
  1. QUETIAPINE [Concomitant]
     Active Substance: QUETIAPINE
  2. HALOPERIDOL. [Concomitant]
     Active Substance: HALOPERIDOL
  3. ISOSORBIDE. [Concomitant]
     Active Substance: ISOSORBIDE
  4. SENNA/DOCUSATE [Concomitant]
  5. VITAMIN D2 [Concomitant]
     Active Substance: ERGOCALCIFEROL
  6. TYLENOL FOR ARTHRITIS PAIN [Concomitant]
  7. SEROQUEL [Suspect]
     Active Substance: QUETIAPINE FUMARATE
     Indication: SCHIZOPHRENIA
     Route: 048
     Dates: start: 20140201, end: 20150909

REACTIONS (26)
  - Decreased interest [None]
  - Blindness [None]
  - Cataract [None]
  - Dizziness [None]
  - Hyperhidrosis [None]
  - Depressed mood [None]
  - Diabetes mellitus [None]
  - Somnolence [None]
  - Vision blurred [None]
  - Feeling cold [None]
  - Faecal incontinence [None]
  - Confusional state [None]
  - Pallor [None]
  - Victim of abuse [None]
  - Nasal congestion [None]
  - Glaucoma [None]
  - Orthostatic hypotension [None]
  - Fatigue [None]
  - Dysphagia [None]
  - Deafness [None]
  - Pain in extremity [None]
  - Fall [None]
  - Dry mouth [None]
  - Back pain [None]
  - Urinary incontinence [None]
  - Constipation [None]

NARRATIVE: CASE EVENT DATE: 20150916
